FAERS Safety Report 8018425-4 (Version None)
Quarter: 2012Q1

REPORT INFORMATION
  Report Type: 
  Country: None (occurrence: None)
  Receive Date: 20120103
  Receipt Date: 20111228
  Transmission Date: 20120608
  Serious: Yes (Other)
  Sender: FDA-Public Use
  Company Number: US-BAYER-2011-124312

PATIENT
  Age: 45 Year
  Sex: Female
  Weight: 63 kg

DRUGS (4)
  1. SYNTHROID [Concomitant]
  2. XOPENEX [Concomitant]
  3. NAPROXEN (ALEVE) [Suspect]
     Indication: BACK PAIN
     Dosage: 2 DF, QD
     Route: 048
     Dates: start: 20111224
  4. DEHIST [Concomitant]

REACTIONS (6)
  - DYSPNOEA [None]
  - ASTHMA [None]
  - EYE SWELLING [None]
  - HYPERSENSITIVITY [None]
  - URTICARIA [None]
  - TINNITUS [None]
